FAERS Safety Report 5019195-4 (Version None)
Quarter: 2006Q2

REPORT INFORMATION
  Report Type: 
  Country: None (occurrence: None)
  Receive Date: 20060531
  Receipt Date: 20060523
  Transmission Date: 20061013
  Serious: Yes (Death)
  Sender: FDA-Public Use
  Company Number: S06-USA-01932-02

PATIENT
  Age: 13 Year

DRUGS (1)
  1. CELEXA [Suspect]

REACTIONS (4)
  - ASPIRATION [None]
  - DEATH NEONATAL [None]
  - DRUG EXPOSURE DURING PREGNANCY [None]
  - NEONATAL ASPIRATION [None]
